FAERS Safety Report 16622610 (Version 1)
Quarter: 2019Q3

REPORT INFORMATION
  Report Type: Spontaneous
  Country: US (occurrence: US)
  Receive Date: 20190723
  Receipt Date: 20190723
  Transmission Date: 20191004
  Serious: No
  Sender: FDA-Public Use
  Company Number: US-OTSUKA-2019_009752

PATIENT
  Sex: Female

DRUGS (5)
  1. REXULTI [Suspect]
     Active Substance: BREXPIPRAZOLE
     Dosage: 9 MG, QD
     Route: 065
     Dates: end: 20190401
  2. REXULTI [Suspect]
     Active Substance: BREXPIPRAZOLE
     Indication: SCHIZOAFFECTIVE DISORDER BIPOLAR TYPE
     Dosage: UNK
     Route: 065
     Dates: start: 20190216
  3. ILOPERIDONE. [Concomitant]
     Active Substance: ILOPERIDONE
     Indication: PRODUCT USED FOR UNKNOWN INDICATION
     Dosage: 12 MG, BID
     Route: 065
  4. PERPHENAZINE. [Concomitant]
     Active Substance: PERPHENAZINE
     Indication: PRODUCT USED FOR UNKNOWN INDICATION
     Dosage: 4 MG TWICE DAILY AND 2 AT BEDTIME
     Route: 065
  5. REXULTI [Suspect]
     Active Substance: BREXPIPRAZOLE
     Dosage: 3 MG, QD
     Route: 065

REACTIONS (3)
  - Product use in unapproved indication [Unknown]
  - Accidental overdose [Unknown]
  - Product dose omission [Unknown]

NARRATIVE: CASE EVENT DATE: 20190216
